FAERS Safety Report 4644508-2 (Version None)
Quarter: 2005Q2

REPORT INFORMATION
  Report Type: 
  Country: None (occurrence: None)
  Receive Date: 20050425
  Receipt Date: 20050425
  Transmission Date: 20051028
  Serious: Yes (Other)
  Sender: FDA-Public Use
  Company Number: None

PATIENT
  Age: 80 Year
  Sex: Male
  Weight: 61.2356 kg

DRUGS (6)
  1. FLOVENT HFA [Suspect]
     Indication: CHRONIC OBSTRUCTIVE PULMONARY DISEASE
     Dosage: 2 PUFFS 2X/DAY (AM + PM)    ONLY USED FOR TWO DOSES
     Dates: start: 20031101
  2. FLOVENT HFA [Suspect]
     Indication: EMPHYSEMA
     Dosage: 2 PUFFS 2X/DAY (AM + PM)    ONLY USED FOR TWO DOSES
     Dates: start: 20031101
  3. DIOVAN HCT [Concomitant]
  4. ALBUTEROL [Concomitant]
  5. VITAMINS [Concomitant]
  6. MINERAL TAB [Concomitant]

REACTIONS (1)
  - RESPIRATORY TRACT IRRITATION [None]
